FAERS Safety Report 6829836-4 (Version None)
Quarter: 2010Q3

REPORT INFORMATION
  Report Type: 
  Country: None (occurrence: None)
  Receive Date: 20100710
  Receipt Date: 20100630
  Transmission Date: 20110219
  Serious: Yes (Hospitalization)
  Sender: FDA-Public Use
  Company Number: US-ASTRAZENECA-2009SE22189

PATIENT
  Age: 87 Year
  Sex: Female
  Weight: 54.9 kg

DRUGS (12)
  1. ENTOCORT EC [Suspect]
     Indication: COLITIS
     Route: 048
  2. ALTACE [Concomitant]
     Indication: HYPERTENSION
  3. CARDIZEM [Concomitant]
     Indication: HYPERTENSION
  4. ACIPHEX [Concomitant]
     Indication: GASTROOESOPHAGEAL REFLUX DISEASE
  5. LASIX [Concomitant]
  6. COREGARD [Concomitant]
  7. ASPIRIN [Concomitant]
  8. LOVAZA [Concomitant]
  9. VITAMIN C [Concomitant]
  10. TYLENOL-500 [Concomitant]
     Indication: ARTHRITIS
  11. MEVACOR [Concomitant]
  12. ALLOPURINOL [Concomitant]

REACTIONS (4)
  - HERPES SIMPLEX [None]
  - MOUTH ULCERATION [None]
  - SWELLING FACE [None]
  - TOOTHACHE [None]
